FAERS Safety Report 6100960-7 (Version None)
Quarter: 2009Q1

REPORT INFORMATION
  Report Type: 
  Country: None (occurrence: None)
  Receive Date: 20090227
  Receipt Date: 20090217
  Transmission Date: 20090719
  Serious: Yes (Hospitalization)
  Sender: FDA-Public Use
  Company Number: 231093K09USA

PATIENT
  Age: 51 Year
  Sex: Female
  Weight: 40 kg

DRUGS (3)
  1. REBIF [Suspect]
     Indication: MULTIPLE SCLEROSIS
     Dosage: 44 MCG, 3 IN 1 WEEKS, SUBCUTANEOUS
     Route: 058
     Dates: start: 20081217
  2. UNSPECIFIED ANTIREFLUX (ALL OTHER THERAPEUTIC PRODUCTS) [Concomitant]
  3. LYRICA [Concomitant]

REACTIONS (5)
  - ANXIETY [None]
  - BLOOD GLUCOSE DECREASED [None]
  - DEHYDRATION [None]
  - HYPOTENSION [None]
  - LOSS OF CONSCIOUSNESS [None]
